FAERS Safety Report 4319008-X (Version None)
Quarter: 2004Q1

REPORT INFORMATION
  Report Type: 
  Country: None (occurrence: None)
  Receive Date: 20040315
  Receipt Date: 20040302
  Transmission Date: 20041129
  Serious: Yes (Life-Threatening, Hospitalization)
  Sender: FDA-Public Use
  Company Number: 2004-00898

PATIENT
  Age: 51 Year
  Sex: Male

DRUGS (4)
  1. ALLOPURINOL [Suspect]
     Indication: GOUT
     Dates: start: 20000610, end: 20000710
  2. LOXOPROFEN (LOXOPROFEN) [Concomitant]
  3. COLCHICINE [Concomitant]
  4. NICARDIPINE HYDROCHLORIDE [Concomitant]

REACTIONS (4)
  - ENCEPHALITIS HERPES [None]
  - HEPATITIS [None]
  - HUMAN HERPES VIRUS 6 SEROLOGY POSITIVE [None]
  - HYPERSENSITIVITY [None]
